FAERS Safety Report 21622072 (Version 1)
Quarter: 2022Q4

REPORT INFORMATION
  Report Type: Report from Study
  Country: US (occurrence: US)
  Receive Date: 20221121
  Receipt Date: 20221121
  Transmission Date: 20230113
  Serious: No
  Sender: FDA-Public Use
  Company Number: US-ABBVIE-4192089

PATIENT

DRUGS (2)
  1. HUMIRA [Suspect]
     Active Substance: ADALIMUMAB
     Indication: Ankylosing spondylitis
     Dosage: STRENGTH- 40 MG, CF
     Route: 058
  2. Brio Inhaler [Concomitant]
     Indication: Product used for unknown indication
     Dosage: 100MCG/25MCG

REACTIONS (3)
  - Asthma [Unknown]
  - Allergy to plants [Unknown]
  - Allergy to animal [Unknown]
